FAERS Safety Report 10429308 (Version 1)
Quarter: 2014Q3

REPORT INFORMATION
  Report Type: Spontaneous
  Country: US (occurrence: None)
  Receive Date: 20140725
  Receipt Date: 20140725
  Transmission Date: 20150326
  Serious: Yes (Other)
  Sender: FDA-Public Use
  Company Number: 163-50794-13074192

PATIENT
  Age: 64 Year
  Sex: Male
  Weight: 99.79 kg

DRUGS (2)
  1. PROCRIT (ERYTHROPOIETIN) [Concomitant]
  2. VIDAZA [Suspect]
     Active Substance: AZACITIDINE
     Indication: 5Q MINUS SYNDROME
     Dosage: 5 IN 7 DAY
     Route: 058
     Dates: start: 20130401

REACTIONS (3)
  - Constipation [None]
  - Platelet count decreased [None]
  - Haemoglobin decreased [None]

NARRATIVE: CASE EVENT DATE: 201304
